FAERS Safety Report 8365048-3 (Version None)
Quarter: 2012Q2

REPORT INFORMATION
  Report Type: 
  Country: None (occurrence: None)
  Receive Date: 20120516
  Receipt Date: 20120509
  Transmission Date: 20120825
  Serious: Yes (Other)
  Sender: FDA-Public Use
  Company Number: JP-GLAXOSMITHKLINE-B0801778A

PATIENT
  Age: 54 Year
  Sex: Female

DRUGS (1)
  1. HYCAMTIN [Suspect]
     Indication: OVARIAN CANCER
     Route: 042
     Dates: start: 20120423, end: 20120427

REACTIONS (2)
  - NEUTROPHIL COUNT DECREASED [None]
  - GASTROINTESTINAL DISORDER [None]
